FAERS Safety Report 14008016 (Version 1)
Quarter: 2017Q3

REPORT INFORMATION
  Report Type: Spontaneous
  Country: CA (occurrence: CA)
  Receive Date: 20170925
  Receipt Date: 20170925
  Transmission Date: 20171128
  Serious: Yes (Hospitalization, Other)
  Sender: FDA-Public Use
  Company Number: CA-PFIZER INC-2012269529

PATIENT
  Age: 74 Year
  Sex: Female

DRUGS (1)
  1. CELEBREX [Suspect]
     Active Substance: CELECOXIB
     Dosage: 200 MG, 2X/DAY
     Dates: start: 20040112

REACTIONS (11)
  - Acute respiratory failure [Unknown]
  - Pneumonia aspiration [Unknown]
  - Acute myocardial infarction [Unknown]
  - Cerebral haemorrhage [Unknown]
  - Type 2 diabetes mellitus [Unknown]
  - Respiratory distress [Unknown]
  - Troponin I increased [Unknown]
  - Blood creatine phosphokinase increased [Unknown]
  - Cardiac failure congestive [Unknown]
  - Dysphagia [Unknown]
  - Ischaemic stroke [Unknown]

NARRATIVE: CASE EVENT DATE: 20090203
